FAERS Safety Report 6531184-7 (Version None)
Quarter: 2010Q1

REPORT INFORMATION
  Report Type: 
  Country: None (occurrence: None)
  Receive Date: 20100108
  Receipt Date: 20100105
  Transmission Date: 20100710
  Serious: Yes (Hospitalization, Other)
  Sender: FDA-Public Use
  Company Number: CA-JNJFOC-20090400683

PATIENT
  Sex: Male
  Weight: 86 kg

DRUGS (11)
  1. REMICADE [Suspect]
     Indication: RHEUMATOID ARTHRITIS
     Route: 042
  2. DILAUDID [Concomitant]
  3. DILAUDID [Concomitant]
  4. METHADONE [Concomitant]
  5. METHADONE [Concomitant]
  6. GRAVOL TAB [Concomitant]
  7. PANTOPRAZOLE [Concomitant]
  8. PLAQUENIL [Concomitant]
  9. CALCIUM W/MAGNESIUM/ZINC [Concomitant]
  10. VITAMIN C [Concomitant]
  11. VITAMIN D [Concomitant]

REACTIONS (5)
  - ARTHRITIS INFECTIVE [None]
  - INFUSION RELATED REACTION [None]
  - KNEE ARTHROPLASTY [None]
  - NAUSEA [None]
  - RHEUMATOID ARTHRITIS [None]
